FAERS Safety Report 13948865 (Version 1)
Quarter: 2017Q3

REPORT INFORMATION
  Report Type: Spontaneous
  Country: US (occurrence: US)
  Receive Date: 20170908
  Receipt Date: 20170908
  Transmission Date: 20171128
  Serious: Yes (Disabling, Other)
  Sender: FDA-Public Use
  Company Number: US-BRISTOL-MYERS SQUIBB COMPANY-BMS-2017-079025

PATIENT
  Age: 43 Year
  Sex: Male

DRUGS (1)
  1. OPDIVO [Suspect]
     Active Substance: NIVOLUMAB
     Indication: METASTATIC RENAL CELL CARCINOMA
     Dosage: 240 MG, Q2WK
     Route: 065

REACTIONS (3)
  - Weight increased [Unknown]
  - Metastases to bone [Unknown]
  - Paraplegia [Unknown]

NARRATIVE: CASE EVENT DATE: 201708
